FAERS Safety Report 24533834 (Version 1)
Quarter: 2024Q4

REPORT INFORMATION
  Report Type: Spontaneous
  Country: CN (occurrence: CN)
  Receive Date: 20241022
  Receipt Date: 20241022
  Transmission Date: 20250115
  Serious: Yes (Other)
  Sender: BAXTER
  Company Number: None

PATIENT
  Age: 31 Year
  Sex: Male

DRUGS (8)
  1. IFOSFAMIDE [Suspect]
     Active Substance: IFOSFAMIDE
     Indication: Penile cancer
     Dosage: 2.1 G, ONE TIME IN ONE DAY, THIRD COURSE
     Route: 041
     Dates: start: 20241009, end: 20241009
  2. IFOSFAMIDE [Suspect]
     Active Substance: IFOSFAMIDE
     Indication: Chemotherapy
  3. TORIPALIMAB [Suspect]
     Active Substance: TORIPALIMAB
     Indication: Penile cancer
     Dosage: 240 MG, ONE TIME IN 21 DAYS, THIRD COURSE
     Route: 041
     Dates: start: 20241009, end: 20241009
  4. TORIPALIMAB [Suspect]
     Active Substance: TORIPALIMAB
     Indication: Targeted cancer therapy
  5. PACLITAXEL [Suspect]
     Active Substance: PACLITAXEL
     Indication: Penile cancer
     Dosage: 248 MG, ONE TIME IN 21 DAYS, THIRD COURSE
     Route: 041
     Dates: start: 20241009, end: 20241009
  6. PACLITAXEL [Suspect]
     Active Substance: PACLITAXEL
     Indication: Chemotherapy
  7. CISPLATIN [Suspect]
     Active Substance: CISPLATIN
     Indication: Penile cancer
     Dosage: 45 MG, ONE TIME IN ONE DAY, THIRD COURSE
     Route: 041
     Dates: start: 20241009, end: 20241009
  8. CISPLATIN [Suspect]
     Active Substance: CISPLATIN
     Indication: Chemotherapy

REACTIONS (4)
  - Skin swelling [Recovering/Resolving]
  - Erythema [Recovering/Resolving]
  - Chills [Recovering/Resolving]
  - Pyrexia [Recovering/Resolving]

NARRATIVE: CASE EVENT DATE: 20241009
